FAERS Safety Report 21352234 (Version 1)
Quarter: 2022Q3

REPORT INFORMATION
  Report Type: Report from Study
  Country: AU (occurrence: AU)
  Receive Date: 20220920
  Receipt Date: 20220920
  Transmission Date: 20221027
  Serious: Yes (Other)
  Sender: FDA-Public Use
  Company Number: AU-NOVARTISPH-NVSC2022AU211737

PATIENT
  Sex: Male

DRUGS (1)
  1. COSENTYX [Suspect]
     Active Substance: SECUKINUMAB
     Indication: Psoriatic arthropathy
     Dosage: UNK
     Route: 058
     Dates: start: 20210122

REACTIONS (3)
  - Neuropathy peripheral [Unknown]
  - Overweight [Unknown]
  - Therapeutic response shortened [Unknown]
